FAERS Safety Report 9664623 (Version 2)
Quarter: 2014Q2

REPORT INFORMATION
  Report Type: Spontaneous
  Country: US (occurrence: US)
  Receive Date: 20131101
  Receipt Date: 20140417
  Transmission Date: 20141212
  Serious: Yes (Death, Hospitalization)
  Sender: FDA-Public Use
  Company Number: US-B.I. PHARMACEUTICALS,INC./RIDGEFIELD-2013-BI-34932BP

PATIENT
  Sex: Female

DRUGS (24)
  1. PRADAXA [Suspect]
     Indication: ATRIAL FIBRILLATION
     Dosage: 150 MG
     Route: 048
     Dates: start: 20110331, end: 20120305
  2. ASPIRIN [Suspect]
     Indication: PRODUCT USED FOR UNKNOWN INDICATION
     Dosage: 325 MG
     Route: 048
  3. HEPARIN [Suspect]
     Indication: PRODUCT USED FOR UNKNOWN INDICATION
     Route: 065
  4. SYNTHROID [Concomitant]
     Dosage: 50 MCG
     Route: 065
  5. LASIX [Concomitant]
     Dosage: 80 MG
     Route: 065
  6. SINGULAIR [Concomitant]
     Dosage: 10 MG
     Route: 065
  7. VITAMIN B12-FOLIC ACID [Concomitant]
     Route: 065
  8. VITAMIN D [Concomitant]
     Route: 065
  9. ZESTRIL [Concomitant]
     Dosage: 10 MG
     Route: 065
  10. HYDRALAZINE HCL [Concomitant]
     Dosage: 75 MG
     Route: 065
  11. RANEXA [Concomitant]
     Dosage: 1000 MG
     Route: 065
  12. COREG [Concomitant]
     Dosage: 25 MG
     Route: 065
  13. IMDUR [Concomitant]
     Dosage: 60 MG
     Route: 065
  14. REGLAN [Concomitant]
     Dosage: 20 MG
     Route: 065
  15. RESTORIL [Concomitant]
     Route: 065
  16. XANAX [Concomitant]
     Route: 065
  17. ZAROXOLYN [Concomitant]
     Dosage: 2.5 MG
     Route: 065
  18. ADVAIR [Concomitant]
     Route: 065
  19. SPIRIVA [Concomitant]
     Dosage: 18 MCG
     Route: 065
  20. NASONEX [Concomitant]
     Dosage: 17 MG
     Route: 065
  21. NITROGLYCERIN [Concomitant]
     Route: 065
  22. DUONEB [Concomitant]
     Route: 065
  23. PROTONIX [Concomitant]
     Dosage: 40 MG
     Route: 065
  24. NORVASC [Concomitant]
     Dosage: 10 MG
     Route: 065

REACTIONS (8)
  - Gastrointestinal haemorrhage [Fatal]
  - Acute respiratory failure [Fatal]
  - Anaemia [Unknown]
  - Haematuria [Unknown]
  - Lobar pneumonia [Unknown]
  - Renal failure acute [Unknown]
  - Chronic obstructive pulmonary disease [Unknown]
  - Cerebrovascular accident [Unknown]
